FAERS Safety Report 23024734 (Version 1)
Quarter: 2023Q4

REPORT INFORMATION
  Report Type: Spontaneous
  Country: US (occurrence: US)
  Receive Date: 20231004
  Receipt Date: 20231004
  Transmission Date: 20240110
  Serious: No
  Sender: FDA-Public Use
  Company Number: US-SA-SAC20230928000568

PATIENT
  Sex: Female

DRUGS (2)
  1. DUPIXENT [Suspect]
     Active Substance: DUPILUMAB
     Indication: Asthma
     Dosage: 300 MG, QOW
     Route: 058
     Dates: start: 20230905
  2. HUMIRA [Concomitant]
     Active Substance: ADALIMUMAB
     Dates: start: 20230918

REACTIONS (2)
  - Rash erythematous [Unknown]
  - Skin discolouration [Unknown]
